FAERS Safety Report 9738471 (Version 7)
Quarter: 2014Q2

REPORT INFORMATION
  Report Type: Spontaneous
  Country: US (occurrence: US)
  Receive Date: 20131208
  Receipt Date: 20140609
  Transmission Date: 20141212
  Serious: Yes (Hospitalization, Other)
  Sender: FDA-Public Use
  Company Number: US-009507513-1109USA01004

PATIENT
  Sex: Female
  Weight: 71.2 kg

DRUGS (5)
  1. FOSAMAX [Suspect]
     Indication: OSTEOPOROSIS PROPHYLAXIS
     Dosage: 10 MG, UNK
     Route: 048
     Dates: start: 19960226, end: 20011204
  2. FOSAMAX [Suspect]
     Dosage: 70 MG, UNK
     Route: 048
     Dates: start: 20011205, end: 20050629
  3. BONIVA [Suspect]
     Indication: OSTEOPOROSIS PROPHYLAXIS
     Dosage: 150 MG, UNK
     Route: 048
     Dates: start: 20050630, end: 200808
  4. CALCIUM (UNSPECIFIED) [Concomitant]
     Indication: OSTEOPOROSIS PROPHYLAXIS
  5. VITAMIN D (UNSPECIFIED) [Concomitant]
     Indication: OSTEOPOROSIS PROPHYLAXIS
     Dosage: 1200 IU, QD/50,000 IU, WEEKLY
     Route: 048
     Dates: start: 2006

REACTIONS (35)
  - Intramedullary rod insertion [Unknown]
  - Intramedullary rod insertion [Unknown]
  - Internal fixation of fracture [Unknown]
  - Cholecystectomy [Unknown]
  - Femur fracture [Unknown]
  - Atypical femur fracture [Unknown]
  - Osteonecrosis of jaw [Unknown]
  - Device malfunction [Unknown]
  - Device malfunction [Unknown]
  - Infection [Unknown]
  - Low turnover osteopathy [Unknown]
  - Vitamin D deficiency [Unknown]
  - Essential hypertension [Unknown]
  - Hyperlipidaemia [Unknown]
  - Neuropathy peripheral [Unknown]
  - Adverse event [Unknown]
  - Arthritis [Unknown]
  - Anaemia postoperative [Unknown]
  - Osteoarthritis [Unknown]
  - Sleep apnoea syndrome [Unknown]
  - Poor personal hygiene [Unknown]
  - Bronchial disorder [Unknown]
  - Blood urea increased [Recovered/Resolved]
  - Arteriosclerosis coronary artery [Unknown]
  - Sinus disorder [Unknown]
  - Dental caries [Unknown]
  - Tooth disorder [Unknown]
  - Tooth disorder [Unknown]
  - Periodontal disease [Unknown]
  - Bursitis [Recovering/Resolving]
  - Device breakage [Unknown]
  - Pyrexia [Unknown]
  - Back pain [Not Recovered/Not Resolved]
  - Gastrooesophageal reflux disease [Unknown]
  - Arthralgia [Not Recovered/Not Resolved]
